FAERS Safety Report 10099206 (Version 3)
Quarter: 2015Q3

REPORT INFORMATION
  Report Type: Spontaneous
  Country: US (occurrence: US)
  Receive Date: 20140423
  Receipt Date: 20150813
  Transmission Date: 20151125
  Serious: No
  Sender: FDA-Public Use
  Company Number: US-GILEAD-2013-0067411

PATIENT
  Age: 60 Year
  Sex: Female

DRUGS (1)
  1. LETAIRIS [Suspect]
     Active Substance: AMBRISENTAN
     Indication: SARCOIDOSIS
     Dosage: 5 MG, QD
     Route: 048
     Dates: start: 20121114

REACTIONS (7)
  - Oedema peripheral [Not Recovered/Not Resolved]
  - Pyrexia [Unknown]
  - Influenza [Recovering/Resolving]
  - Influenza like illness [Recovering/Resolving]
  - Malaise [Unknown]
  - Dyspnoea [Not Recovered/Not Resolved]
  - Pain [Unknown]
